FAERS Safety Report 9269676 (Version 2)
Quarter: 2013Q2

REPORT INFORMATION
  Report Type: Spontaneous
  Country: DE (occurrence: DE)
  Receive Date: 20130503
  Receipt Date: 20130516
  Transmission Date: 20140414
  Serious: Yes (Life-Threatening, Hospitalization)
  Sender: FDA-Public Use
  Company Number: DE-GE HEALTHCARE MEDICAL DIAGNOSTICS-VISP-NO-1304S-0581

PATIENT
  Age: 71 Year
  Sex: Female

DRUGS (10)
  1. VISIPAQUE [Suspect]
     Indication: BRONCHIAL CARCINOMA
     Route: 042
     Dates: start: 20130416, end: 20130416
  2. VISIPAQUE [Suspect]
     Indication: DIAGNOSTIC PROCEDURE
  3. CANDESARTAN [Concomitant]
  4. FUROSEMID [Concomitant]
  5. BISOPROLOL [Concomitant]
  6. AMIODARON [Concomitant]
  7. EUTHYROX [Concomitant]
  8. LITALIR [Concomitant]
  9. REMERGIL [Concomitant]
  10. PANTOZOL [Concomitant]

REACTIONS (2)
  - Anuria [Recovered/Resolved]
  - Renal failure acute [Recovered/Resolved]
